FAERS Safety Report 10470311 (Version 1)
Quarter: 2014Q3

REPORT INFORMATION
  Report Type: Spontaneous
  Country: US (occurrence: None)
  Receive Date: 20140904
  Receipt Date: 20140904
  Transmission Date: 20150326
  Serious: No
  Sender: FDA-Public Use
  Company Number: 228057

PATIENT
  Age: 50 Year
  Sex: Female

DRUGS (1)
  1. PICATO [Suspect]
     Active Substance: INGENOL MEBUTATE
     Indication: PRECANCEROUS CELLS PRESENT
     Dates: start: 20140512

REACTIONS (4)
  - Drug administration error [None]
  - Application site pain [None]
  - Application site swelling [None]
  - Nausea [None]

NARRATIVE: CASE EVENT DATE: 20140512
